FAERS Safety Report 9247812 (Version 1)
Quarter: 2013Q1

REPORT INFORMATION
  Report Type: Spontaneous
  Country: US (occurrence: None)
  Receive Date: 20130305
  Receipt Date: 20130305
  Transmission Date: 20140127
  Serious: Yes (Hospitalization)
  Sender: FDA-Public Use
  Company Number: 163-21880-12101505

PATIENT
  Age: 73 Year
  Sex: Male

DRUGS (7)
  1. REVLIMID (LENALIDOMIDE) (25 MILLIGRAM, CAPSULES) [Suspect]
     Indication: PLASMA CELL MYELOMA
     Dosage: 05/07/2009 - UNKNOWN, CAPSULE, 10 MG, 21 IN 28 D, PO
  2. VITAMINS [Concomitant]
  3. UROXATRAL (ALFUZOSIN HYDROCHLORIDE) [Concomitant]
  4. ASPIRIN (ACETYLSALICYLIC ACID) [Concomitant]
  5. HYDROCHLOROTHIAZIDE (HYDROCHLOROTHIAZIDE) [Concomitant]
  6. CALCIUM (CALCIUM) [Concomitant]
  7. GLUCOSAMINE-CHONDROITIN (GLUCOSAMINE W/CHONDROITIN SULFATE) [Concomitant]

REACTIONS (1)
  - Sepsis [None]
